FAERS Safety Report 6064689-6 (Version None)
Quarter: 2009Q1

REPORT INFORMATION
  Report Type: 
  Country: None (occurrence: None)
  Receive Date: 20090203
  Receipt Date: 20090203
  Transmission Date: 20090719
  Serious: No
  Sender: FDA-Public Use
  Company Number: None

PATIENT
  Age: 68 Year
  Sex: Male

DRUGS (1)
  1. NIACIN ER 500 MG GOLDLINE [Suspect]
     Indication: BLOOD CHOLESTEROL
     Dosage: 500 MG PO
     Route: 048
     Dates: start: 20081201, end: 20090101

REACTIONS (4)
  - FLUSHING [None]
  - PRURITUS [None]
  - RASH [None]
  - RASH MORBILLIFORM [None]
